FAERS Safety Report 7017973-3 (Version None)
Quarter: 2010Q3

REPORT INFORMATION
  Report Type: 
  Country: None (occurrence: None)
  Receive Date: 20100923
  Receipt Date: 20100909
  Transmission Date: 20110219
  Serious: Yes (Hospitalization)
  Sender: FDA-Public Use
  Company Number: DSA_33278_2009

PATIENT
  Age: 86 Year
  Sex: Male

DRUGS (10)
  1. ENALAPRIL MALEATE [Suspect]
     Indication: HYPERTENSION
     Dosage: (2.5 MG BID ORAL), (2.5 MG QD ORAL)
     Route: 048
     Dates: start: 20080401, end: 20080729
  2. ENALAPRIL MALEATE [Suspect]
     Indication: HYPERTENSION
     Dosage: (2.5 MG BID ORAL), (2.5 MG QD ORAL)
     Route: 048
     Dates: start: 20080820
  3. XIPAMIDE (XIPAMIDE) 20 MG [Suspect]
     Indication: CARDIAC FAILURE
     Dosage: (20 MG QD ORAL)
     Route: 048
     Dates: start: 20080401, end: 20080727
  4. AMLODIPINE [Suspect]
     Indication: HYPERTENSION
     Dosage: (5 MG QD ORAL)
     Route: 048
     Dates: start: 20070101, end: 20080727
  5. BISOPROLOL FUMARATE [Suspect]
     Indication: HYPERTENSION
     Dosage: (2.5 MG QD ORAL), (2.5 MG QD ORAL)
     Route: 048
     Dates: start: 20070101, end: 20080727
  6. BISOPROLOL FUMARATE [Suspect]
     Indication: HYPERTENSION
     Dosage: (2.5 MG QD ORAL), (2.5 MG QD ORAL)
     Route: 048
     Dates: start: 20080820
  7. LEVOFLOXACIN [Suspect]
     Indication: URINARY TRACT INFECTION
     Dosage: (250 MG QD ORAL)
     Route: 048
     Dates: start: 20080721, end: 20080803
  8. ASPIRIN [Concomitant]
  9. CETIRIZINE HYDROCHLORIDE [Concomitant]
  10. DIPYRONE [Concomitant]

REACTIONS (10)
  - BRADYARRHYTHMIA [None]
  - CARDIAC FAILURE [None]
  - CONDITION AGGRAVATED [None]
  - DEHYDRATION [None]
  - DISTURBANCE IN ATTENTION [None]
  - DRUG INTERACTION [None]
  - HYPOTENSION [None]
  - RENAL FAILURE ACUTE [None]
  - URINARY TRACT INFECTION [None]
  - URINARY TRACT INFECTION FUNGAL [None]
